FAERS Safety Report 8520157 (Version 2)
Quarter: 2013Q1

REPORT INFORMATION
  Report Type: Spontaneous
  Country: US (occurrence: US)
  Receive Date: 20120418
  Receipt Date: 20130226
  Transmission Date: 20140127
  Serious: Yes (Other)
  Sender: FDA-Public Use
  Company Number: US-ROCHE-1058786

PATIENT
  Age: 65 Year
  Sex: Female

DRUGS (6)
  1. BONIVA [Suspect]
     Indication: OSTEOPOROSIS
     Route: 048
     Dates: start: 200603, end: 20100319
  2. BONIVA [Suspect]
     Indication: OSTEOPENIA
  3. FOSAMAX [Suspect]
     Indication: OSTEOPOROSIS
     Route: 048
     Dates: start: 199503, end: 200010
  4. FOSAMAX [Suspect]
     Indication: OSTEOPENIA
  5. ACTONEL [Suspect]
     Indication: OSTEOPOROSIS
     Route: 048
     Dates: start: 200011, end: 200601
  6. ACTONEL [Suspect]
     Indication: OSTEOPENIA

REACTIONS (7)
  - Low turnover osteopathy [Unknown]
  - Pathological fracture [Unknown]
  - Anxiety [Unknown]
  - Emotional distress [Unknown]
  - Femur fracture [Unknown]
  - Stress fracture [Unknown]
  - Depression [Unknown]
